FAERS Safety Report 15362659 (Version 3)
Quarter: 2018Q4

REPORT INFORMATION
  Report Type: Spontaneous
  Country: DE (occurrence: DE)
  Receive Date: 20180907
  Receipt Date: 20181129
  Transmission Date: 20190204
  Serious: Yes (Hospitalization, Other)
  Sender: FDA-Public Use
  Company Number: PHHY2018DE091316

PATIENT
  Age: 41 Year
  Sex: Female
  Weight: 76 kg

DRUGS (6)
  1. CARBOPLATIN. [Suspect]
     Active Substance: CARBOPLATIN
     Indication: PRODUCT USED FOR UNKNOWN INDICATION
     Dosage: 150 MG, CYCLIC (150MG DAY 1,8,15, CYCLIC)
     Route: 065
     Dates: start: 20180626
  2. DEXAMETHASONE. [Concomitant]
     Active Substance: DEXAMETHASONE
     Indication: PROPHYLAXIS
     Dosage: 8 MG, QD
     Route: 042
     Dates: start: 20180626, end: 20180731
  3. CARBOPLATIN. [Suspect]
     Active Substance: CARBOPLATIN
     Dosage: 150 MG, CYCLIC (150MG DAY 1,8,15, CYCLIC)
     Route: 065
     Dates: start: 20180731
  4. PACLITAXEL. [Suspect]
     Active Substance: PACLITAXEL
     Dosage: 181 MG, CYCLIC(181 MG DAY 1,8,15, CYCLIC)
     Route: 065
     Dates: start: 20180731
  5. PACLITAXEL. [Suspect]
     Active Substance: PACLITAXEL
     Indication: PRODUCT USED FOR UNKNOWN INDICATION
     Dosage: 181 MG, CYCLIC (181 MG DAY 1,8,15, CYCLIC)
     Route: 065
     Dates: start: 20180626
  6. ONDANSETRON [Concomitant]
     Active Substance: ONDANSETRON
     Indication: PROPHYLAXIS
     Dosage: 8 MG, QD
     Route: 042
     Dates: start: 20180626, end: 20180731

REACTIONS (1)
  - Febrile neutropenia [Recovered/Resolved]

NARRATIVE: CASE EVENT DATE: 20180810
